FAERS Safety Report 15950928 (Version 2)
Quarter: 2019Q3

REPORT INFORMATION
  Report Type: Spontaneous
  Country: US (occurrence: US)
  Receive Date: 20190212
  Receipt Date: 20190809
  Transmission Date: 20191004
  Serious: Yes (Other)
  Sender: FDA-Public Use
  Company Number: US-TAKEDA-2019TUS005580

PATIENT

DRUGS (15)
  1. ATORVASTATIN [Concomitant]
     Active Substance: ATORVASTATIN
  2. RANITIDINE. [Concomitant]
     Active Substance: RANITIDINE
  3. FOLIC ACID. [Concomitant]
     Active Substance: FOLIC ACID
  4. BIOTIN [Concomitant]
     Active Substance: BIOTIN
  5. HUMALOG [Concomitant]
     Active Substance: INSULIN LISPRO
  6. FUROSEMIDE. [Concomitant]
     Active Substance: FUROSEMIDE
  7. CYCLOBENZAPRINE. [Concomitant]
     Active Substance: CYCLOBENZAPRINE
  8. ALLOPURINOL. [Concomitant]
     Active Substance: ALLOPURINOL
  9. OMEPRAZOLE. [Suspect]
     Active Substance: OMEPRAZOLE
     Indication: GASTROOESOPHAGEAL REFLUX DISEASE
     Dosage: 20 MILLIGRAM, BID
     Route: 048
     Dates: start: 20100517, end: 20160823
  10. LANTUS [Concomitant]
     Active Substance: INSULIN GLARGINE
  11. CARVEDILOL. [Concomitant]
     Active Substance: CARVEDILOL
  12. PREVACID [Suspect]
     Active Substance: LANSOPRAZOLE
     Indication: GASTROOESOPHAGEAL REFLUX DISEASE
     Dosage: 30 MILLIGRAM, BID
     Route: 048
     Dates: start: 20070724, end: 20110410
  13. LORATADINE. [Concomitant]
     Active Substance: LORATADINE
  14. CREON [Concomitant]
     Active Substance: PANCRELIPASE AMYLASE\PANCRELIPASE LIPASE\PANCRELIPASE PROTEASE
  15. TRAZODONE [Concomitant]
     Active Substance: TRAZODONE HYDROCHLORIDE

REACTIONS (1)
  - Chronic kidney disease [Not Recovered/Not Resolved]

NARRATIVE: CASE EVENT DATE: 2011
